FAERS Safety Report 7780764-X (Version None)
Quarter: 2011Q3

REPORT INFORMATION
  Report Type: 
  Country: None (occurrence: None)
  Receive Date: 20110927
  Receipt Date: 20110921
  Transmission Date: 20111222
  Serious: Yes (Death)
  Sender: FDA-Public Use
  Company Number: NL-SANOFI-AVENTIS-2011SA013149

PATIENT
  Age: 55 Year
  Sex: Male
  Weight: 68 kg

DRUGS (24)
  1. TAXOTERE [Suspect]
     Dosage: DAY 1 OF EACH 21-DAY CYCLE
     Route: 048
     Dates: start: 20110110, end: 20110110
  2. INSULIN GLARGINE [Concomitant]
     Indication: DIABETES MELLITUS
     Route: 065
     Dates: start: 20101116, end: 20110123
  3. OXYCODONE HYDROCHLORIDE [Concomitant]
     Dates: start: 20110113, end: 20110124
  4. NADROPARIN [Concomitant]
     Indication: THROMBOSIS PROPHYLAXIS
     Dates: start: 20110119, end: 20110122
  5. INVESTIGATIONAL DRUG [Concomitant]
     Dosage: DAY 1-5 OF 21-DAY CYCLE.
     Route: 048
     Dates: start: 20110110, end: 20110114
  6. PANCREATIN TRIPLE STRENGTH CAP [Concomitant]
     Indication: NEOPLASM
     Route: 065
     Dates: start: 20100902
  7. OXYCODONE HYDROCHLORIDE [Concomitant]
     Indication: PAIN
     Route: 065
     Dates: start: 20110113
  8. ACETAMINOPHEN [Concomitant]
     Indication: PAIN
     Dates: start: 20101116, end: 20110124
  9. PRIMAXIN [Concomitant]
     Dosage: 500/500MG
     Dates: start: 20110118, end: 20110122
  10. INSULIN GLARGINE [Concomitant]
     Route: 065
     Dates: start: 20110124
  11. ESOMEPRAZOLE SODIUM [Concomitant]
     Dates: start: 20100902, end: 20110123
  12. PANCREATIN TRIPLE STRENGTH CAP [Concomitant]
     Indication: PANCREATIC INSUFFICIENCY
     Dates: start: 20100908
  13. DEXAMETHASONE [Concomitant]
     Dates: start: 20110130, end: 20110201
  14. TAXOTERE [Suspect]
     Dosage: DAY 1 OF EACH 21-DAY CYCLE
     Route: 065
     Dates: start: 20110131, end: 20110131
  15. INVESTIGATIONAL DRUG [Concomitant]
     Dosage: DAY 1-5 OF 21-DAY CYCLE.
     Route: 065
     Dates: start: 20110131, end: 20110204
  16. INSULIN INJECTION, BIPHASIC [Concomitant]
     Indication: DIABETES MELLITUS
     Dates: start: 20101116, end: 20110123
  17. INSULIN INJECTION, BIPHASIC [Concomitant]
     Dates: start: 20110124
  18. OXYCODONE HYDROCHLORIDE [Concomitant]
     Dates: start: 20101030, end: 20110112
  19. DEXAMETHASONE [Concomitant]
     Dates: start: 20110109, end: 20110111
  20. ESOMEPRAZOLE SODIUM [Concomitant]
     Dates: start: 20110124
  21. SODIUM CHLORIDE INJ [Concomitant]
     Dosage: CONTINUOUS
     Dates: start: 20110118, end: 20110122
  22. ESOMEPRAZOLE SODIUM [Concomitant]
     Indication: PROPHYLAXIS
     Dates: start: 20100902, end: 20110123
  23. ESOMEPRAZOLE SODIUM [Concomitant]
     Dates: start: 20110124
  24. POLYETHYLENE GLYCOL [Concomitant]
     Indication: CONSTIPATION
     Dates: start: 20101116, end: 20110124

REACTIONS (1)
  - DEATH [None]
